FAERS Safety Report 7471928-3 (Version None)
Quarter: 2011Q2

REPORT INFORMATION
  Report Type: 
  Country: None (occurrence: None)
  Receive Date: 20110511
  Receipt Date: 20100727
  Transmission Date: 20111010
  Serious: No
  Sender: FDA-Public Use
  Company Number: A0872522A

PATIENT
  Age: 58 Year
  Sex: Female

DRUGS (5)
  1. COMPAZINE [Concomitant]
  2. MORPHINE [Concomitant]
  3. TYKERB [Suspect]
     Indication: BREAST CANCER
     Dosage: 5TAB PER DAY
     Route: 048
     Dates: start: 20100714
  4. DEXAMETHASONE SODIUM POSPHATE [Concomitant]
  5. XELODA [Concomitant]

REACTIONS (1)
  - ERYTHEMA [None]
